FAERS Safety Report 8424139-9 (Version None)
Quarter: 2012Q2

REPORT INFORMATION
  Report Type: 
  Country: None (occurrence: None)
  Receive Date: 20120608
  Receipt Date: 20120326
  Transmission Date: 20120825
  Serious: No
  Sender: FDA-Public Use
  Company Number: US-ASTRAZENECA-2012SE20193

PATIENT
  Age: 83 Year
  Sex: Female

DRUGS (2)
  1. LETAIRIS [Suspect]
     Indication: PULMONARY HYPERTENSION
     Route: 048
     Dates: start: 20110720
  2. PULMICORT FLEXHALER [Suspect]
     Route: 055

REACTIONS (3)
  - NAIL DISCOLOURATION [None]
  - ORAL CANDIDIASIS [None]
  - OEDEMA PERIPHERAL [None]
